FAERS Safety Report 7185938-7 (Version None)
Quarter: 2010Q4

REPORT INFORMATION
  Report Type: 
  Country: None (occurrence: None)
  Receive Date: 20101222
  Receipt Date: 20100611
  Transmission Date: 20110411
  Serious: No
  Sender: FDA-Public Use
  Company Number: US-AMGEN-TCS418150

PATIENT

DRUGS (4)
  1. ENBREL [Suspect]
     Indication: PSORIATIC ARTHROPATHY
     Dosage: 50 MG, QWK
     Route: 058
     Dates: start: 20090101
  2. ENBREL [Suspect]
     Indication: PSORIASIS
  3. METHOTREXATE [Concomitant]
     Dosage: 12.5 MG, QWK
     Route: 048
  4. ADALIMUMAB [Concomitant]

REACTIONS (19)
  - CHEST PAIN [None]
  - DRUG HYPERSENSITIVITY [None]
  - FALL [None]
  - FATIGUE [None]
  - FOOT FRACTURE [None]
  - HYPERTENSION [None]
  - IMPAIRED HEALING [None]
  - INGROWING NAIL [None]
  - LUPUS-LIKE SYNDROME [None]
  - NAIL INFECTION [None]
  - NEURALGIA [None]
  - OEDEMA PERIPHERAL [None]
  - PAIN [None]
  - PALPITATIONS [None]
  - PSORIASIS [None]
  - RASH [None]
  - STOMATITIS [None]
  - SWELLING [None]
  - THERAPEUTIC RESPONSE DECREASED [None]
